FAERS Safety Report 13415394 (Version 1)
Quarter: 2017Q2

REPORT INFORMATION
  Report Type: Spontaneous
  Country: MX (occurrence: MX)
  Receive Date: 20170406
  Receipt Date: 20170406
  Transmission Date: 20170830
  Serious: Yes (Death)
  Sender: FDA-Public Use
  Company Number: MX-FRESENIUS KABI-FK201702804

PATIENT
  Age: 9 Year
  Sex: Female

DRUGS (2)
  1. BLEOMYCIN [Suspect]
     Active Substance: BLEOMYCIN SULFATE
     Indication: HODGKIN^S DISEASE
     Route: 065
     Dates: end: 20140204
  2. EPIRUBICIN (MANUFACTURER UNKNOWN) [Suspect]
     Active Substance: EPIRUBICIN
     Indication: HODGKIN^S DISEASE
     Route: 065
     Dates: end: 20140204

REACTIONS (1)
  - Congestive cardiomyopathy [Fatal]
